FAERS Safety Report 11062941 (Version 2)
Quarter: 2015Q2

REPORT INFORMATION
  Report Type: Spontaneous
  Country: IT (occurrence: IT)
  Receive Date: 20150424
  Receipt Date: 20150427
  Transmission Date: 20150821
  Serious: Yes (Other)
  Sender: FDA-Public Use
  Company Number: PHHY2015IT045404

PATIENT
  Age: 33 Year
  Sex: Male

DRUGS (6)
  1. BUPROPION [Suspect]
     Active Substance: BUPROPION
     Indication: DEPRESSION
  2. CLOZAPINE. [Interacting]
     Active Substance: CLOZAPINE
     Dosage: 200 MG, QD
     Route: 065
  3. CLOZAPINE. [Interacting]
     Active Substance: CLOZAPINE
     Indication: SCHIZOPHRENIA
     Dosage: 500 MG/D
     Route: 065
  4. FLUOXETINE [Concomitant]
     Active Substance: FLUOXETINE\FLUOXETINE HYDROCHLORIDE
     Indication: DEPRESSION
     Dosage: 20 MG, QD
     Route: 065
  5. BUPROPION [Suspect]
     Active Substance: BUPROPION
     Indication: DEPRESSED MOOD
  6. BUPROPION [Suspect]
     Active Substance: BUPROPION
     Indication: APATHY
     Dosage: 150 MG, QD
     Route: 065

REACTIONS (12)
  - Seizure [Recovered/Resolved]
  - Vision blurred [Recovering/Resolving]
  - Drug interaction [Recovered/Resolved]
  - Weight decreased [Recovering/Resolving]
  - Tachycardia [Recovering/Resolving]
  - Sedation [Recovering/Resolving]
  - Illusion [Recovered/Resolved]
  - Hypotension [Recovering/Resolving]
  - Constipation [Recovering/Resolving]
  - Hallucination [Recovered/Resolved]
  - Salivary hypersecretion [Not Recovered/Not Resolved]
  - Increased appetite [Recovering/Resolving]
